FAERS Safety Report 7655868-2 (Version None)
Quarter: 2011Q3

REPORT INFORMATION
  Report Type: 
  Country: None (occurrence: None)
  Receive Date: 20110729
  Receipt Date: 20110714
  Transmission Date: 20111222
  Serious: Yes (Other)
  Sender: FDA-Public Use
  Company Number: TPA2011A04024

PATIENT
  Age: 60 Year
  Sex: Female
  Weight: 101.1521 kg

DRUGS (16)
  1. BYETTA [Concomitant]
  2. VICTOZA [Concomitant]
  3. NEURONTIN [Concomitant]
  4. ALEVE [Concomitant]
  5. SINGULAIR [Concomitant]
  6. ACTOS [Suspect]
     Indication: TYPE 2 DIABETES MELLITUS
     Dosage: 40 MG, QAM, PER ORAL
     Route: 048
     Dates: start: 20030101
  7. LIPITOR [Concomitant]
  8. METFORMIN HCL [Suspect]
     Indication: TYPE 2 DIABETES MELLITUS
     Dates: end: 20110101
  9. ASPIRIN [Concomitant]
  10. DIOVAN [Concomitant]
  11. ULTRAM [Concomitant]
  12. GLUCOSAMINE (GLUCOSAMINE) [Concomitant]
  13. TRICOR (ADENOSINE) [Concomitant]
  14. SKELAXIN [Concomitant]
  15. MULTIVITAMIN [Concomitant]
  16. IRON (IRON) [Concomitant]

REACTIONS (2)
  - BLADDER CANCER [None]
  - RENAL CANCER [None]
